FAERS Safety Report 13717996 (Version 1)
Quarter: 2017Q3

REPORT INFORMATION
  Report Type: Spontaneous
  Country: CN (occurrence: CN)
  Receive Date: 20170705
  Receipt Date: 20170705
  Transmission Date: 20171127
  Serious: Yes (Hospitalization)
  Sender: FDA-Public Use
  Company Number: CN-BAYER-2017-123747

PATIENT
  Age: 58 Year
  Sex: Male

DRUGS (1)
  1. NEXAVAR [Suspect]
     Active Substance: SORAFENIB
     Indication: HEPATIC CANCER
     Dosage: 400 MG, BID
     Route: 048
     Dates: start: 201406

REACTIONS (8)
  - Metastases to abdominal cavity [None]
  - Hepatic cancer [None]
  - Hepatic cancer [None]
  - Metastases to abdominal wall [None]
  - Metastases to abdominal cavity [Not Recovered/Not Resolved]
  - Hepatic cancer [None]
  - Metastases to peritoneum [None]
  - Hepatic cancer metastatic [None]

NARRATIVE: CASE EVENT DATE: 201506
